FAERS Safety Report 5637484-7 (Version None)
Quarter: 2008Q1

REPORT INFORMATION
  Report Type: 
  Country: None (occurrence: None)
  Receive Date: 20080219
  Receipt Date: 20080207
  Transmission Date: 20080703
  Serious: Yes (Hospitalization)
  Sender: FDA-Public Use
  Company Number: 163-21880-08020445

PATIENT
  Age: 56 Year
  Sex: Male
  Weight: 216.8 kg

DRUGS (9)
  1. REVLIMID [Suspect]
     Indication: CHRONIC LYMPHOCYTIC LEUKAEMIA
     Dosage: 2.5 MG, DAYS 1-7, ORAL
     Route: 048
     Dates: start: 20080114, end: 20080116
  2. DILAUDID [Concomitant]
  3. ALLOPURINOL [Concomitant]
  4. BACTRIM DS [Concomitant]
  5. VALTREX [Concomitant]
  6. METOPROLOL TARTRATE [Concomitant]
  7. ASPIRIN [Concomitant]
  8. HYDROCODONE BITARTRATE [Concomitant]
  9. MORPHINE [Concomitant]

REACTIONS (6)
  - BLOOD LACTATE DEHYDROGENASE INCREASED [None]
  - DYSPHAGIA [None]
  - DYSPNOEA [None]
  - LYMPH NODE PAIN [None]
  - LYMPHADENOPATHY [None]
  - TUMOUR FLARE [None]
